FAERS Safety Report 7832361-5 (Version None)
Quarter: 2011Q4

REPORT INFORMATION
  Report Type: 
  Country: None (occurrence: None)
  Receive Date: 20111022
  Receipt Date: 20111005
  Transmission Date: 20120403
  Serious: Yes (Hospitalization)
  Sender: FDA-Public Use
  Company Number: US-BAYER-2011-052571

PATIENT
  Age: 38 Year
  Sex: Female
  Weight: 61.2 kg

DRUGS (3)
  1. YASMIN [Suspect]
     Indication: MENSTRUATION IRREGULAR
     Dosage: UNK
     Dates: start: 20030101, end: 20050901
  2. ALLEGRA [Concomitant]
     Dosage: UNK UNK, CONT
     Route: 048
  3. NEURONTIN [Concomitant]
     Dosage: UNK UNK, TID
     Route: 048

REACTIONS (4)
  - PAIN [None]
  - JOINT RANGE OF MOTION DECREASED [None]
  - DEEP VEIN THROMBOSIS [None]
  - OEDEMA PERIPHERAL [None]
